FAERS Safety Report 4601079-4 (Version None)
Quarter: 2005Q1

REPORT INFORMATION
  Report Type: 
  Country: None (occurrence: None)
  Receive Date: 20050308
  Receipt Date: 20050224
  Transmission Date: 20050727
  Serious: Yes (Hospitalization)
  Sender: FDA-Public Use
  Company Number: US-JNJFOC-20041206257

PATIENT
  Sex: Female

DRUGS (10)
  1. REMICADE [Suspect]
     Indication: RHEUMATOID ARTHRITIS
     Route: 042
  2. CELEBREX [Concomitant]
  3. METHOTREXATE [Concomitant]
     Dosage: 0.8 CC OF 25 MG PER ML
     Route: 058
  4. ALLEGRA [Concomitant]
  5. ADVAIR DISKUS 100/50 [Concomitant]
  6. ADVAIR DISKUS 100/50 [Concomitant]
  7. ARAVA [Concomitant]
     Dates: start: 20030201, end: 20040901
  8. ALTAN [Concomitant]
  9. ALTACE [Concomitant]
  10. RHINOCORT [Concomitant]
     Route: 055

REACTIONS (3)
  - ATYPICAL MYCOBACTERIAL INFECTION [None]
  - CRYPTOCOCCOSIS [None]
  - MENINGIOMA [None]
